FAERS Safety Report 5341086-X (Version None)
Quarter: 2007Q2

REPORT INFORMATION
  Report Type: 
  Country: None (occurrence: None)
  Receive Date: 20070405
  Receipt Date: 20060301
  Transmission Date: 20071010
  Serious: Yes (Hospitalization)
  Sender: FDA-Public Use
  Company Number: 2006-00805

PATIENT
  Age: 91 Year
  Sex: Female

DRUGS (1)
  1. FERRLECIT [Suspect]

REACTIONS (2)
  - BLOOD PRESSURE SYSTOLIC INCREASED [None]
  - MYOCARDIAL INFARCTION [None]
